FAERS Safety Report 8216689-5 (Version None)
Quarter: 2012Q1

REPORT INFORMATION
  Report Type: 
  Country: None (occurrence: None)
  Receive Date: 20120316
  Receipt Date: 20120312
  Transmission Date: 20120608
  Serious: Yes (Death, Life-Threatening, Hospitalization, Other)
  Sender: FDA-Public Use
  Company Number: JP-TEVA-2011004047

PATIENT
  Sex: Male
  Weight: 47 kg

DRUGS (10)
  1. PREDNISOLONE [Concomitant]
     Dates: start: 20100907
  2. LAFUTIDINE [Concomitant]
  3. SULFAMETHOXAZOLE + TRIMETHOPRIM [Concomitant]
     Dates: start: 20100907
  4. FUROSEMIDE [Concomitant]
  5. ASPIRIN [Concomitant]
     Dates: end: 20110928
  6. TREANDA [Suspect]
     Route: 042
     Dates: start: 20110517, end: 20110721
  7. TREANDA [Suspect]
     Route: 042
     Dates: end: 20110903
  8. TREANDA [Suspect]
     Indication: SPLENIC MARGINAL ZONE LYMPHOMA
     Route: 042
     Dates: start: 20110224, end: 20110318
  9. TRAMADOL HYDROCHLORIDE [Concomitant]
     Dates: start: 20110222
  10. DEXTROMETHORPHAN HYDROBROMIDE [Concomitant]
     Dates: end: 20110928

REACTIONS (12)
  - ALTERED STATE OF CONSCIOUSNESS [None]
  - NEUTROPHIL COUNT DECREASED [None]
  - VARICELLA [None]
  - FEMORAL NECK FRACTURE [None]
  - MELAENA [None]
  - PNEUMONIA [None]
  - LYMPHOCYTE COUNT DECREASED [None]
  - HEPATIC FUNCTION ABNORMAL [None]
  - PYREXIA [None]
  - NAUSEA [None]
  - C-REACTIVE PROTEIN INCREASED [None]
  - CYTOMEGALOVIRUS INFECTION [None]
